FAERS Safety Report 24204756 (Version 1)
Quarter: 2024Q3

REPORT INFORMATION
  Report Type: Spontaneous
  Country: GB (occurrence: GB)
  Receive Date: 20240813
  Receipt Date: 20240813
  Transmission Date: 20241016
  Serious: Yes (Other)
  Sender: ELI LILLY AND CO
  Company Number: GB-MHRA-EMIS-9145-e1c96bde-a5bf-4135-bd5c-97772ce15e99

PATIENT
  Age: 29 Year
  Sex: Male
  Weight: 109 kg

DRUGS (2)
  1. TIRZEPATIDE [Suspect]
     Active Substance: TIRZEPATIDE
     Indication: Product used for unknown indication
     Dosage: 2.5 MG, WEEKLY (1/W)
     Route: 058
     Dates: start: 20240614, end: 20240724
  2. AMOXICILLIN [Concomitant]
     Active Substance: AMOXICILLIN
     Indication: Product used for unknown indication
     Dosage: UNK UNK, TID, ONE TO BE TAKEN THREE TIMES A DAY
     Dates: start: 20240711

REACTIONS (4)
  - Confusional state [Unknown]
  - Liver function test abnormal [Unknown]
  - Pyrexia [Unknown]
  - Troponin increased [Unknown]
